FAERS Safety Report 24116803 (Version 2)
Quarter: 2024Q3

REPORT INFORMATION
  Report Type: Spontaneous
  Country: US (occurrence: US)
  Receive Date: 20240722
  Receipt Date: 20240722
  Transmission Date: 20241016
  Serious: No
  Sender: ASTELLAS
  Company Number: US-ASTELLAS-2023US029814

PATIENT
  Sex: Male

DRUGS (4)
  1. MYRBETRIQ [Suspect]
     Active Substance: MIRABEGRON
     Indication: Urinary incontinence
     Dosage: 25 MG, ONCE DAILY (IN MORNING AROUND 7AM)
     Route: 065
     Dates: start: 20230915
  2. MYRBETRIQ [Suspect]
     Active Substance: MIRABEGRON
     Indication: Urinary incontinence
     Route: 065
     Dates: start: 20231101
  3. ASPARAGUS [Concomitant]
     Active Substance: ASPARAGUS
     Indication: Bladder cancer
     Dosage: UNK UNK, UNKNOWN FREQ.
     Route: 065
  4. OPDIVO [Concomitant]
     Active Substance: NIVOLUMAB
     Indication: Bladder cancer
     Dosage: UNK UNK, UNKNOWN FREQ. (TOOK FOR 4 MONTH ONLY)
     Route: 065

REACTIONS (5)
  - Urinary incontinence [Unknown]
  - Impaired driving ability [Unknown]
  - Arthritis [Recovering/Resolving]
  - Headache [Recovering/Resolving]
  - Drug ineffective [Recovering/Resolving]
